FAERS Safety Report 15768411 (Version 1)
Quarter: 2018Q4

REPORT INFORMATION
  Report Type: Spontaneous
  Country: DE (occurrence: DE)
  Receive Date: 20181227
  Receipt Date: 20181227
  Transmission Date: 20190205
  Serious: Yes (Other)
  Sender: FDA-Public Use
  Company Number: DE-AMGEN-DEUSP2018183190

PATIENT
  Age: 78 Year
  Sex: Female

DRUGS (1)
  1. PROLIA [Suspect]
     Active Substance: DENOSUMAB
     Indication: PRODUCT USED FOR UNKNOWN INDICATION
     Dosage: UNK
     Route: 065

REACTIONS (5)
  - Thoracic vertebral fracture [Unknown]
  - Pancreatitis [Unknown]
  - Lumbar vertebral fracture [Unknown]
  - Eating disorder [Unknown]
  - Fracture [Unknown]

NARRATIVE: CASE EVENT DATE: 201805
